FAERS Safety Report 23842658 (Version 2)
Quarter: 2025Q1

REPORT INFORMATION
  Report Type: Spontaneous
  Country: US (occurrence: US)
  Receive Date: 20240510
  Receipt Date: 20250307
  Transmission Date: 20250409
  Serious: Yes (Hospitalization, Other)
  Sender: DR REDDYS
  Company Number: US-DRL-USA-LIT/USA/24/0006819

PATIENT
  Age: 35 Year
  Sex: Male

DRUGS (5)
  1. LEVETIRACETAM [Suspect]
     Active Substance: LEVETIRACETAM
     Indication: Focal dyscognitive seizures
  2. LEVETIRACETAM [Suspect]
     Active Substance: LEVETIRACETAM
  3. LAMOTRIGINE [Suspect]
     Active Substance: LAMOTRIGINE
     Indication: Focal dyscognitive seizures
  4. LAMOTRIGINE [Suspect]
     Active Substance: LAMOTRIGINE
  5. LACOSAMIDE [Concomitant]
     Active Substance: LACOSAMIDE
     Indication: Focal dyscognitive seizures

REACTIONS (11)
  - Epilepsy [Unknown]
  - Ictal bradycardia syndrome [Unknown]
  - Disease progression [Unknown]
  - Drug ineffective [Unknown]
  - Subarachnoid haemorrhage [Unknown]
  - Skull fracture [Unknown]
  - Cardiac arrest [Unknown]
  - Cerebral hypoperfusion [Unknown]
  - Hippocampal sclerosis [Unknown]
  - Temporal lobe epilepsy [Unknown]
  - Treatment noncompliance [Unknown]
